FAERS Safety Report 8782838 (Version 1)
Quarter: 2012Q4

REPORT INFORMATION
  Report Type: 
  Country: FR (occurrence: FR)
  Receive Date: 20120913
  Receipt Date: 20120913
  Transmission Date: 20130627
  Serious: Yes (Other)
  Sender: FDA-Public Use
  Company Number: FR-GLAXOSMITHKLINE-B0827607A

PATIENT
  Age: 35 Year
  Sex: Female

DRUGS (2)
  1. SALBUMOL [Suspect]
     Indication: UTERINE CONTRACTIONS DURING PREGNANCY
     Route: 048
     Dates: start: 20120210
  2. ISOPTINE [Suspect]
     Indication: UTERINE CONTRACTIONS DURING PREGNANCY
     Route: 048
     Dates: start: 20120210

REACTIONS (5)
  - Tachycardia [Unknown]
  - Tremor [Unknown]
  - Speech disorder [Unknown]
  - Abdominal pain upper [Unknown]
  - Exposure during pregnancy [Unknown]
